FAERS Safety Report 6860475-5 (Version None)
Quarter: 2010Q3

REPORT INFORMATION
  Report Type: 
  Country: None (occurrence: None)
  Receive Date: 20100720
  Receipt Date: 20100628
  Transmission Date: 20110219
  Serious: Yes (Death, Hospitalization, Disabling)
  Sender: FDA-Public Use
  Company Number: A0796462A

PATIENT
  Age: 68 Year
  Sex: Male

DRUGS (5)
  1. AVANDIA [Suspect]
     Dosage: 8MG TWICE PER DAY
     Route: 048
     Dates: start: 20010101, end: 20070608
  2. GLUCOTROL [Concomitant]
  3. GLUCOPHAGE [Concomitant]
  4. RISPERDAL [Concomitant]
  5. ACTOS [Concomitant]
     Dates: start: 20070608

REACTIONS (3)
  - CARDIAC FAILURE CONGESTIVE [None]
  - CARDIOVASCULAR DISORDER [None]
  - ISCHAEMIC STROKE [None]
